FAERS Safety Report 4484078-5 (Version None)
Quarter: 2004Q4

REPORT INFORMATION
  Report Type: 
  Country: None (occurrence: None)
  Receive Date: 20041025
  Receipt Date: 20041010
  Transmission Date: 20050328
  Serious: Yes (Death, Hospitalization, Other)
  Sender: FDA-Public Use
  Company Number: PHEH2004US11159

PATIENT
  Age: 66 Year
  Sex: Female

DRUGS (7)
  1. GLEEVEC [Suspect]
     Indication: CHRONIC MYELOID LEUKAEMIA
     Dosage: 400 MG, UNK
     Route: 048
     Dates: start: 20010501
  2. GLEEVEC [Suspect]
     Dosage: 600 MG, UNK
     Route: 048
     Dates: start: 20040601
  3. GLEEVEC [Suspect]
     Dosage: 800 MG, UNK
     Route: 048
     Dates: end: 20040601
  4. GLEEVEC [Suspect]
     Dosage: 600 MG, UNK
     Dates: end: 20040719
  5. ATIVAN [Concomitant]
  6. PROZAC [Concomitant]
  7. CARDIZEM [Concomitant]

REACTIONS (21)
  - ANAEMIA [None]
  - BLOOD LACTATE DEHYDROGENASE INCREASED [None]
  - BONE MARROW DEPRESSION [None]
  - BONE PAIN [None]
  - CYANOSIS [None]
  - DEPRESSED LEVEL OF CONSCIOUSNESS [None]
  - DIABETES MELLITUS [None]
  - DIARRHOEA [None]
  - DRUG RESISTANCE [None]
  - DYSPNOEA [None]
  - HYPERVITAMINOSIS [None]
  - INTERSTITIAL LUNG DISEASE [None]
  - ORAL CANDIDIASIS [None]
  - PANCYTOPENIA [None]
  - PNEUMOCYSTIS CARINII PNEUMONIA [None]
  - PNEUMONITIS [None]
  - PRODUCTIVE COUGH [None]
  - PULMONARY FIBROSIS [None]
  - RESPIRATORY FAILURE [None]
  - TRANSFUSION REACTION [None]
  - WHITE BLOOD CELL COUNT INCREASED [None]
